FAERS Safety Report 23150023 (Version 2)
Quarter: 2023Q4

REPORT INFORMATION
  Report Type: Spontaneous
  Country: US (occurrence: US)
  Receive Date: 20231106
  Receipt Date: 20231211
  Transmission Date: 20240110
  Serious: No
  Sender: FDA-Public Use
  Company Number: US-PFIZER INC-202300355374

PATIENT
  Age: 52 Year
  Sex: Male

DRUGS (1)
  1. TRAZIMERA [Suspect]
     Active Substance: TRASTUZUMAB-QYYP
     Dosage: UNK

REACTIONS (1)
  - Hypersensitivity [Unknown]
